FAERS Safety Report 9582581 (Version 1)
Quarter: 2013Q4

REPORT INFORMATION
  Report Type: Spontaneous
  Country: US (occurrence: US)
  Receive Date: 20131002
  Receipt Date: 20131002
  Transmission Date: 20140711
  Serious: No
  Sender: FDA-Public Use
  Company Number: US-AMGEN-USASP2013041278

PATIENT
  Age: 37 Year
  Sex: Male
  Weight: 160 kg

DRUGS (4)
  1. ENBREL [Suspect]
     Indication: PRODUCT USED FOR UNKNOWN INDICATION
     Dosage: 50 MG, QWK
     Route: 058
  2. ACYCLOVIR                          /00587301/ [Concomitant]
     Dosage: 200 MG, UNK
     Route: 048
  3. VALTREX [Concomitant]
     Dosage: 500 MG, UNK
     Route: 048
  4. MULTIVITAMINS, PLAIN [Concomitant]
     Dosage: UNK
     Route: 048

REACTIONS (2)
  - Injection site bruising [Unknown]
  - Injection site swelling [Unknown]
